FAERS Safety Report 9290297 (Version 2)
Quarter: 2013Q3

REPORT INFORMATION
  Report Type: Spontaneous
  Country: CA (occurrence: CA)
  Receive Date: 20130515
  Receipt Date: 20130829
  Transmission Date: 20140515
  Serious: Yes (Hospitalization, Other)
  Sender: FDA-Public Use
  Company Number: CA-ELI_LILLY_AND_COMPANY-CA201305002082

PATIENT
  Age: 88 Year
  Sex: Male

DRUGS (5)
  1. HUMALOG LISPRO [Suspect]
     Dosage: 11 U, BID
  2. HUMALOG LISPRO [Suspect]
     Dosage: 7 U, BID
  3. LUPRON DEPOT [Suspect]
     Indication: PROSTATE CANCER
     Dosage: UNK, UNKNOWN
     Route: 058
     Dates: start: 20110915
  4. LASIX                              /00032601/ [Concomitant]
     Dosage: UNK, UNKNOWN
  5. METOPROLOL [Concomitant]
     Dosage: UNK, UNKNOWN

REACTIONS (8)
  - Acute myocardial infarction [Unknown]
  - Cardiac failure [Unknown]
  - Bronchial hyperreactivity [Unknown]
  - Chronic obstructive pulmonary disease [Recovered/Resolved]
  - Prostate cancer [Unknown]
  - Personality change [Unknown]
  - Hypoglycaemia [Unknown]
  - Delirium [Unknown]
